FAERS Safety Report 6937529-8 (Version None)
Quarter: 2010Q3

REPORT INFORMATION
  Report Type: 
  Country: None (occurrence: None)
  Receive Date: 20100823
  Receipt Date: 20100823
  Transmission Date: 20110219
  Serious: Yes (Life-Threatening)
  Sender: FDA-Public Use
  Company Number: None

PATIENT
  Age: 19 Year
  Sex: Female
  Weight: 56.6996 kg

DRUGS (2)
  1. HYDROXYZINE PAMOATE [Suspect]
     Indication: ANXIETY
     Dosage: 1 TO 2 4 TIMES UNK
     Dates: start: 20091204, end: 20100108
  2. HYDROXYZINE PAMOATE [Suspect]
     Indication: POSTPARTUM DISORDER
     Dosage: 1 TO 2 4 TIMES UNK
     Dates: start: 20091204, end: 20100108

REACTIONS (9)
  - AGGRESSION [None]
  - ANXIETY [None]
  - CRYING [None]
  - DRUG DEPENDENCE [None]
  - DYSURIA [None]
  - HALLUCINATION, VISUAL [None]
  - MOOD SWINGS [None]
  - PERSONALITY CHANGE [None]
  - PRODUCT QUALITY ISSUE [None]
